FAERS Safety Report 6157795-9 (Version None)
Quarter: 2009Q2

REPORT INFORMATION
  Report Type: 
  Country: None (occurrence: None)
  Receive Date: 20090409
  Receipt Date: 20090330
  Transmission Date: 20091009
  Serious: Yes (Other)
  Sender: FDA-Public Use
  Company Number: AEUSA200900070

PATIENT

DRUGS (3)
  1. IMMUNE GLOBULIN (HUMAN) [Suspect]
     Indication: PRIMARY IMMUNODEFICIENCY SYNDROME
     Dosage: 10 GM;QM;IV
     Route: 042
  2. CARIMUNE NF [Suspect]
     Indication: PRIMARY IMMUNODEFICIENCY SYNDROME
     Dosage: 10 MG;QM;IV
     Route: 042
  3. DIPHENHYDRAMINE HCL [Concomitant]

REACTIONS (2)
  - ANAPHYLACTOID REACTION [None]
  - SERUM SICKNESS [None]
